FAERS Safety Report 14346736 (Version 1)
Quarter: 2018Q1

REPORT INFORMATION
  Report Type: Spontaneous
  Country: US (occurrence: US)
  Receive Date: 20180103
  Receipt Date: 20180103
  Transmission Date: 20180509
  Serious: Yes (Hospitalization)
  Sender: FDA-Public Use
  Company Number: US-OTSUKA-2017_028103AA

PATIENT
  Sex: Female

DRUGS (3)
  1. TOLVAPTAN [Suspect]
     Active Substance: TOLVAPTAN
     Dosage: UNK
     Route: 065
     Dates: start: 20171102
  2. TOLVAPTAN [Suspect]
     Active Substance: TOLVAPTAN
     Indication: HYPONATRAEMIA
     Dosage: UNK
     Route: 065
     Dates: end: 20171123
  3. TOLVAPTAN [Suspect]
     Active Substance: TOLVAPTAN
     Dosage: 1/2 OF A TOLVAPTAN 15MG TABLET (7.5 MG)
     Route: 065

REACTIONS (7)
  - Pain [Unknown]
  - Abdominal pain [Unknown]
  - Confusional state [Unknown]
  - Head injury [Unknown]
  - Fall [Unknown]
  - Wrong technique in product usage process [Unknown]
  - Hyponatraemia [Unknown]
